FAERS Safety Report 24889934 (Version 3)
Quarter: 2025Q3

REPORT INFORMATION
  Report Type: Spontaneous
  Country: EU (occurrence: EU)
  Receive Date: 20250127
  Receipt Date: 20250809
  Transmission Date: 20251020
  Serious: Yes (Other)
  Sender: ALEXION PHARMACEUTICALS
  Company Number: EU-ASTRAZENECA-202501GLO020640BE

PATIENT
  Age: 78 Year
  Sex: Female

DRUGS (2)
  1. OSIMERTINIB [Suspect]
     Active Substance: OSIMERTINIB
     Indication: Lung adenocarcinoma
     Route: 065
  2. SELPERCATINIB [Concomitant]
     Active Substance: SELPERCATINIB

REACTIONS (7)
  - Malignant neoplasm progression [Unknown]
  - Metastases to pleura [Unknown]
  - Acquired gene mutation [Unknown]
  - Malignant pleural effusion [Unknown]
  - Metastases to bone [Unknown]
  - Drug resistance [Unknown]
  - Metastases to pleura [Unknown]
